FAERS Safety Report 7436920-3 (Version None)
Quarter: 2011Q2

REPORT INFORMATION
  Report Type: 
  Country: None (occurrence: None)
  Receive Date: 20110426
  Receipt Date: 20110421
  Transmission Date: 20111010
  Serious: Yes (Disabling, Other)
  Sender: FDA-Public Use
  Company Number: US-AMGEN-USASP2011009906

PATIENT
  Age: 80 Year
  Sex: Male
  Weight: 78.005 kg

DRUGS (13)
  1. FOLIC ACID [Concomitant]
     Dosage: 1 MG, BID
  2. CALCIUM [Concomitant]
     Dosage: 500 MG, BID
  3. TRICOR [Concomitant]
     Dosage: 145 MG, QD
  4. NIASPAN [Concomitant]
     Dosage: 500 MG, QD
  5. NPLATE [Suspect]
     Indication: IDIOPATHIC THROMBOCYTOPENIC PURPURA
     Dosage: 5.2 A?G/KG, QWK
     Route: 058
     Dates: start: 20100114, end: 20101011
  6. PREDNISONE [Concomitant]
     Dosage: 20 MG, UNK
     Dates: start: 20101014, end: 20101101
  7. LOPRESSOR [Concomitant]
     Dosage: 0.5 MG, QD
  8. LOVAZA [Concomitant]
  9. ZOCOR [Concomitant]
     Dosage: 40 MG, QD
     Route: 048
  10. IVIGLOB-EX [Concomitant]
     Dosage: 80 G, UNK
     Dates: start: 20101015
  11. LEVOXYL [Concomitant]
     Dosage: 125 A?G/KG, QD
  12. NPLATE [Suspect]
     Dates: start: 20100114, end: 20101011
  13. MULTI-VITAMINS VITAFIT [Concomitant]

REACTIONS (9)
  - PETECHIAE [None]
  - BLINDNESS [None]
  - THROMBOSIS [None]
  - RETINAL ARTERY OCCLUSION [None]
  - PLATELET COUNT INCREASED [None]
  - THROMBOCYTOPENIA [None]
  - COLONIC POLYP [None]
  - EMBOLISM ARTERIAL [None]
  - MOUTH HAEMORRHAGE [None]
